FAERS Safety Report 20547011 (Version 1)
Quarter: 2022Q1

REPORT INFORMATION
  Report Type: Spontaneous
  Country: GB (occurrence: GB)
  Receive Date: 20220303
  Receipt Date: 20220303
  Transmission Date: 20220424
  Serious: Yes (Other)
  Sender: FDA-Public Use
  Company Number: None

PATIENT
  Age: 42 Year
  Sex: Female
  Weight: 66 kg

DRUGS (14)
  1. ATORVASTATIN [Suspect]
     Active Substance: ATORVASTATIN
     Indication: Product used for unknown indication
     Dosage: 10 MILLIGRAM, QD
     Dates: start: 20220203
  2. BISOPROLOL [Concomitant]
     Active Substance: BISOPROLOL
     Dosage: 1 DOSAGE FORM, QD
     Dates: start: 20211006
  3. DAPAGLIFLOZIN [Concomitant]
     Active Substance: DAPAGLIFLOZIN
     Dosage: 1 DOSAGE FORM, QD
     Dates: start: 20211231
  4. DOXAZOSIN [Concomitant]
     Active Substance: DOXAZOSIN MESYLATE
     Dosage: 1 DOSAGE FORM, QD
     Dates: start: 20211006
  5. FLUOXETINE [Concomitant]
     Active Substance: FLUOXETINE HYDROCHLORIDE
     Dosage: 2 DOSAGE FORM, QD
     Dates: start: 20211006
  6. FUROSEMIDE [Concomitant]
     Active Substance: FUROSEMIDE
     Dosage: 2 DOSAGE FORM, BID TAKE AT 8 MORNING AND AT MID-DAY
     Dates: start: 20211006
  7. LANSOPRAZOLE [Concomitant]
     Active Substance: LANSOPRAZOLE
     Dosage: 1 DOSAGE FORM
     Dates: start: 20211202, end: 20211230
  8. LINAGLIPTIN [Concomitant]
     Active Substance: LINAGLIPTIN
     Dosage: 1 DOSAGE FORM, QD
     Dates: start: 20211006, end: 20211231
  9. ISOSORBIDE MONONITRATE [Concomitant]
     Active Substance: ISOSORBIDE MONONITRATE
     Dosage: 1 DOSAGE FORM, AM, TAKE IN THE MORNING
     Dates: start: 20211119
  10. NOVORAPID [Concomitant]
     Active Substance: INSULIN ASPART
     Dosage: 5 TO 10 UNITS BEFORE EVENING MEALS (ONLY WHEN H...
     Dates: start: 20211006
  11. QVAR [Concomitant]
     Active Substance: BECLOMETHASONE DIPROPIONATE
     Dosage: 2 DOSAGE FORM, BID
     Dates: start: 20211006
  12. SACUBITRIL [Concomitant]
     Active Substance: SACUBITRIL
     Dosage: 1 DOSAGE FORM, BID
     Dates: start: 20211006
  13. SIMVASTATIN [Concomitant]
     Active Substance: SIMVASTATIN
     Dosage: TAKE AT NIGHT
     Dates: start: 20220224
  14. TRESIBA [Concomitant]
     Active Substance: INSULIN DEGLUDEC
     Dosage: 25 INTERNATIONAL UNIT, USE BEFORE BREAKFAST
     Dates: start: 20211006

REACTIONS (2)
  - Hypotension [Recovered/Resolved]
  - Malaise [Unknown]

NARRATIVE: CASE EVENT DATE: 20220224
